FAERS Safety Report 11686149 (Version 17)
Quarter: 2017Q2

REPORT INFORMATION
  Report Type: Spontaneous
  Country: US (occurrence: US)
  Receive Date: 20151030
  Receipt Date: 20170628
  Transmission Date: 20170829
  Serious: Yes (Congenital Anomaly, Other)
  Sender: FDA-Public Use
  Company Number: PHEH2015US021941

PATIENT
  Sex: Male

DRUGS (5)
  1. ZOFRAN ODT [Suspect]
     Active Substance: ONDANSETRON HYDROCHLORIDE
     Indication: FOETAL EXPOSURE DURING PREGNANCY
     Route: 064
  2. ONDANSETRONE RANBAXY [Suspect]
     Active Substance: ONDANSETRON HYDROCHLORIDE
     Indication: FOETAL EXPOSURE DURING PREGNANCY
     Dosage: MOTHERS DOSE: 8 MG PRN
     Route: 064
  3. ONDANSETRON [Suspect]
     Active Substance: ONDANSETRON
     Indication: FOETAL EXPOSURE DURING PREGNANCY
     Dosage: MOTHERS DOSE: 5 MG PRN AND 4 MG PRN
     Route: 064
  4. ONDANSETRON [Suspect]
     Active Substance: ONDANSETRON
     Indication: FOETAL EXPOSURE DURING PREGNANCY
     Dosage: MOTHERS DOSE: 8 MG PRN
     Route: 064
  5. ZOFRAN [Suspect]
     Active Substance: ONDANSETRON HYDROCHLORIDE
     Indication: FOETAL EXPOSURE DURING PREGNANCY
     Route: 064

REACTIONS (25)
  - Atrial septal defect [Unknown]
  - Left-to-right cardiac shunt [Unknown]
  - Heart disease congenital [Unknown]
  - Pulmonary artery stenosis congenital [Unknown]
  - Right ventricular enlargement [Unknown]
  - Injury [Unknown]
  - Anhedonia [Unknown]
  - Multiple congenital abnormalities [Unknown]
  - Nasal congestion [Unknown]
  - Constipation [Unknown]
  - Pulmonary valve stenosis congenital [Unknown]
  - Anxiety [Unknown]
  - Talipes [Unknown]
  - Foetal exposure during pregnancy [Unknown]
  - Emotional distress [Unknown]
  - Cough [Unknown]
  - Rash [Unknown]
  - Right atrial enlargement [Unknown]
  - Right ventricular hypertrophy [Unknown]
  - Pain [Unknown]
  - Congenital anomaly [Unknown]
  - Cardiac murmur [Unknown]
  - Tracheitis [Unknown]
  - Seborrhoea [Unknown]
  - Upper respiratory tract infection [Unknown]
